FAERS Safety Report 6696050-5 (Version None)
Quarter: 2010Q2

REPORT INFORMATION
  Report Type: 
  Country: None (occurrence: None)
  Receive Date: 20100426
  Receipt Date: 20100415
  Transmission Date: 20101027
  Serious: Yes (Other)
  Sender: FDA-Public Use
  Company Number: PHEH2010US02717

PATIENT
  Sex: Female
  Weight: 67.574 kg

DRUGS (32)
  1. ZOMETA [Suspect]
     Indication: METASTASES TO BONE
     Dosage: 3.0 (UNIT UNSPECIFIED) EVERY 21 DAYS
     Route: 042
     Dates: start: 20090506, end: 20091021
  2. ZOMETA [Suspect]
     Dosage: 3 MG PER 3 WEEKS
     Route: 042
     Dates: start: 20090211, end: 20091021
  3. ALPRAZOLAM [Concomitant]
     Route: 048
  4. ATENOLOL [Concomitant]
     Route: 048
  5. CALCIUM [Concomitant]
     Route: 048
  6. CLONIDINE HYDROCHLORIDE [Concomitant]
     Route: 048
  7. COMPAZINE [Concomitant]
     Indication: NAUSEA
     Dosage: 10 MG, PRN
     Route: 048
  8. CYANOCOBALAMIN [Concomitant]
     Dosage: 1000 MCG/ML VIAL, Q9 WEKKS
     Route: 058
  9. DEXAMETHASONE [Concomitant]
     Dosage: 4 MG, UNK
     Route: 048
  10. DIOVAN [Concomitant]
     Route: 048
  11. FENTANYL [Concomitant]
     Dosage: 25 UG/HR, UNK
     Route: 062
  12. FOLIC ACID [Concomitant]
     Route: 048
  13. HYDROCHLOROTHIAZIDE [Concomitant]
     Route: 048
  14. HYDROCODONE BITARTRATE [Concomitant]
     Indication: PAIN
     Dosage: 10-325 MG PRN
     Route: 048
  15. IMODIUM ADVANCED [Concomitant]
     Route: 048
  16. INSULIN HUMAN [Concomitant]
  17. LASIX [Concomitant]
     Dosage: 20 MG, QD
     Route: 048
  18. LEVAQUIN [Concomitant]
     Route: 048
  19. LORAZEPAM [Concomitant]
     Dosage: 1 MG, QHS
     Route: 048
  20. LYRICA [Concomitant]
     Route: 048
  21. MEGESTROL ACETATE [Concomitant]
     Dosage: 20 ML, QD
     Route: 048
  22. METFORMIN HYDROCHLORIDE [Concomitant]
     Route: 048
  23. MULTI-VITAMINS [Concomitant]
     Route: 048
  24. NEXIUM [Concomitant]
     Dosage: 40 MG, QD
     Route: 048
  25. PENTOXIFYLLINE [Concomitant]
     Route: 048
  26. PROMETHAZINE HCL [Concomitant]
     Indication: NAUSEA
     Dosage: 25 MG, PRN
     Route: 048
  27. SIMVASTATIN [Concomitant]
     Route: 048
  28. VITAMIN B-12 [Concomitant]
     Route: 048
  29. VITAMIN B6 [Concomitant]
     Route: 048
  30. ZOFRAN [Concomitant]
     Dosage: 8 MG, PRN
     Route: 048
  31. ALIMTA [Concomitant]
     Indication: LUNG NEOPLASM MALIGNANT
     Dosage: 720 MG EVERY 3 WEEKS
     Route: 042
     Dates: start: 20090210
  32. AVASTIN [Concomitant]
     Indication: LUNG NEOPLASM MALIGNANT
     Dosage: 700 MG PER 3 WEEKS
     Route: 042
     Dates: start: 20090210

REACTIONS (3)
  - OSTEOMYELITIS [None]
  - OSTEONECROSIS [None]
  - TOOTHACHE [None]
